FAERS Safety Report 12876968 (Version 1)
Quarter: 2016Q4

REPORT INFORMATION
  Report Type: Spontaneous
  Country: JP (occurrence: JP)
  Receive Date: 20161024
  Receipt Date: 20161024
  Transmission Date: 20170207
  Serious: Yes (Hospitalization, Other)
  Sender: FDA-Public Use
  Company Number: JP-GLAXOSMITHKLINE-JP2016JPN152041

PATIENT
  Age: 83 Year
  Sex: Female

DRUGS (1)
  1. SEREVENT DISKUS [Suspect]
     Active Substance: SALMETEROL XINAFOATE
     Indication: ASTHMA
     Dosage: UNK
     Route: 055

REACTIONS (10)
  - Toxicity to various agents [Recovering/Resolving]
  - Palpitations [Recovering/Resolving]
  - Metabolic acidosis [Recovering/Resolving]
  - Sinus tachycardia [Recovering/Resolving]
  - Off label use [Unknown]
  - Hypokalaemia [Recovering/Resolving]
  - Overdose [Unknown]
  - Hyperlactacidaemia [Recovering/Resolving]
  - Hyperglycaemia [Recovering/Resolving]
  - Hypertension [Recovering/Resolving]
